FAERS Safety Report 21222173 (Version 7)
Quarter: 2022Q4

REPORT INFORMATION
  Report Type: Spontaneous
  Country: US (occurrence: US)
  Receive Date: 20220817
  Receipt Date: 20221219
  Transmission Date: 20230113
  Serious: No
  Sender: FDA-Public Use
  Company Number: US-PFIZER INC-PV202200044546

PATIENT
  Age: 57 Year
  Sex: Female

DRUGS (1)
  1. IBRANCE [Suspect]
     Active Substance: PALBOCICLIB
     Dosage: 125 MG
     Dates: start: 20220814

REACTIONS (13)
  - Neoplasm progression [Not Recovered/Not Resolved]
  - Product dose omission issue [Unknown]
  - Product dose omission in error [Unknown]
  - Bone pain [Unknown]
  - Osteoporosis [Unknown]
  - Back pain [Unknown]
  - Fatigue [Not Recovered/Not Resolved]
  - Spinal osteoarthritis [Unknown]
  - Nausea [Not Recovered/Not Resolved]
  - Dry skin [Not Recovered/Not Resolved]
  - Dry eye [Not Recovered/Not Resolved]
  - Alopecia [Not Recovered/Not Resolved]
  - Lacrimation increased [Not Recovered/Not Resolved]

NARRATIVE: CASE EVENT DATE: 20220101
